FAERS Safety Report 13821419 (Version 1)
Quarter: 2017Q3

REPORT INFORMATION
  Report Type: Spontaneous
  Country: JP (occurrence: JP)
  Receive Date: 20170801
  Receipt Date: 20170801
  Transmission Date: 20171127
  Serious: Yes (Other)
  Sender: FDA-Public Use
  Company Number: JP-009507513-1707JPN001520J

PATIENT
  Sex: Female

DRUGS (2)
  1. ERELSA TABLETS 50MG [Suspect]
     Active Substance: ELBASVIR
     Dosage: 50 MG, QD
     Route: 048
     Dates: start: 201707
  2. GRAZYNA TABLETS 50MG [Suspect]
     Active Substance: GRAZOPREVIR
     Dosage: 100 MG, QD
     Route: 048
     Dates: start: 201707

REACTIONS (1)
  - Renal impairment [Unknown]

NARRATIVE: CASE EVENT DATE: 201707
